FAERS Safety Report 6684480-7 (Version None)
Quarter: 2010Q2

REPORT INFORMATION
  Report Type: 
  Country: None (occurrence: None)
  Receive Date: 20100416
  Receipt Date: 20100412
  Transmission Date: 20101027
  Serious: Yes (Other)
  Sender: FDA-Public Use
  Company Number: GB-SANOFI-AVENTIS-2010SA019851

PATIENT
  Age: 37 Year
  Sex: Female

DRUGS (2)
  1. ENOXAPARIN SODIUM [Suspect]
     Indication: ANTIPHOSPHOLIPID SYNDROME
  2. ASPIRIN [Concomitant]
     Indication: ANTIPHOSPHOLIPID SYNDROME

REACTIONS (2)
  - DRUG EXPOSURE DURING PREGNANCY [None]
  - OSTEOPOROTIC FRACTURE [None]
